FAERS Safety Report 12945978 (Version 23)
Quarter: 2018Q2

REPORT INFORMATION
  Report Type: Report from Study
  Country: US (occurrence: US)
  Receive Date: 20161115
  Receipt Date: 20180625
  Transmission Date: 20180711
  Serious: Yes (Death, Hospitalization)
  Sender: FDA-Public Use
  Company Number: US-ACTELION-A-US2016-144994

PATIENT
  Age: 63 Year
  Sex: Female
  Weight: 65.31 kg

DRUGS (49)
  1. KLOR-CON [Concomitant]
     Active Substance: POTASSIUM CHLORIDE
     Dosage: UNK
     Dates: start: 20170424
  2. PROTONIX [Concomitant]
     Active Substance: PANTOPRAZOLE SODIUM
     Dosage: UNK
     Dates: start: 20140425
  3. ULTRAM [Concomitant]
     Active Substance: TRAMADOL HYDROCHLORIDE
     Dosage: UNK
     Dates: start: 20140711
  4. PREDNISONE. [Concomitant]
     Active Substance: PREDNISONE
     Dosage: 5 MG, QD
  5. LOPERAMIDE [Concomitant]
     Active Substance: LOPERAMIDE
  6. PANTOPRAZOLE [Concomitant]
     Active Substance: PANTOPRAZOLE
     Dosage: UNK
     Dates: start: 2014
  7. UPTRAVI [Suspect]
     Active Substance: SELEXIPAG
     Dosage: 800 MCG, BID
     Route: 048
     Dates: start: 20160928
  8. UPTRAVI [Suspect]
     Active Substance: SELEXIPAG
     Dosage: UNK
     Route: 048
     Dates: start: 20161001
  9. VITAMIN D3 [Concomitant]
     Active Substance: CHOLECALCIFEROL
     Dosage: UNK
     Dates: start: 20151118
  10. PLAQUENIL [Concomitant]
     Active Substance: HYDROXYCHLOROQUINE SULFATE
     Dosage: UNK
     Dates: start: 2005
  11. SILVADENE [Concomitant]
     Active Substance: SILVER SULFADIAZINE
     Dosage: UNK
     Dates: start: 20140727
  12. BACITRACIN. [Concomitant]
     Active Substance: BACITRACIN
     Dosage: UNK
     Dates: start: 20170406
  13. LEVOFLOXACIN. [Concomitant]
     Active Substance: LEVOFLOXACIN
     Dosage: UNK
     Dates: start: 20140425
  14. PREDNISONE. [Concomitant]
     Active Substance: PREDNISONE
     Dosage: UNK
     Dates: start: 20151027
  15. UPTRAVI [Suspect]
     Active Substance: SELEXIPAG
     Dosage: 1400 MCG, BID
     Route: 048
  16. LASIX [Concomitant]
     Active Substance: FUROSEMIDE
     Dosage: 80 MG, BID
     Route: 042
     Dates: start: 20171212
  17. FERROUS GLUCONATE [Concomitant]
     Active Substance: FERROUS GLUCONATE
     Dosage: UNK
     Dates: start: 20170620
  18. ECOTRIN [Concomitant]
     Active Substance: ASPIRIN
     Dosage: UNK
     Dates: start: 20140425
  19. PREDNISONE. [Concomitant]
     Active Substance: PREDNISONE
     Dosage: 60 MG, QD
  20. MECLIZINE [Concomitant]
     Active Substance: MECLIZINE HYDROCHLORIDE
  21. TRAJENTA [Concomitant]
     Active Substance: LINAGLIPTIN
     Dosage: UNK
     Dates: start: 20171002
  22. CALCIUM CITRATE [Concomitant]
     Active Substance: CALCIUM CITRATE
     Dosage: UNK
     Dates: start: 20140425
  23. DOCUSATE SODIUM. [Concomitant]
     Active Substance: DOCUSATE SODIUM
     Dosage: UNK
     Dates: start: 20161116
  24. UPTRAVI [Suspect]
     Active Substance: SELEXIPAG
     Indication: PULMONARY HYPERTENSION
     Dosage: 1600 MCG, BID
     Route: 048
     Dates: start: 20171203
  25. UPTRAVI [Suspect]
     Active Substance: SELEXIPAG
     Dosage: 800 MCG, BID
     Route: 048
  26. LASIX [Concomitant]
     Active Substance: FUROSEMIDE
     Indication: SWELLING
     Dosage: 80 MG, QD
     Dates: start: 20170427
  27. COLACE [Concomitant]
     Active Substance: DOCUSATE SODIUM
     Dosage: UNK
     Dates: start: 20160310
  28. ANTIVERT [Concomitant]
     Active Substance: MECLIZINE HYDROCHLORIDE
     Dosage: UNK
     Dates: start: 20161212
  29. MAGNESIUM OXIDE. [Concomitant]
     Active Substance: MAGNESIUM OXIDE
     Dosage: UNK
     Dates: start: 20170427
  30. ASPIRIN. [Concomitant]
     Active Substance: ASPIRIN
     Dosage: UNK
     Dates: start: 20140425
  31. NIFEDIPINE. [Concomitant]
     Active Substance: NIFEDIPINE
  32. HEPARIN [Concomitant]
     Active Substance: HEPARIN SODIUM
     Dosage: UNK
     Dates: start: 20171129
  33. BUMEX [Concomitant]
     Active Substance: BUMETANIDE
     Dosage: 5 MG, QD
     Dates: start: 201712
  34. MIRALAX [Concomitant]
     Active Substance: POLYETHYLENE GLYCOL 3350
  35. UPTRAVI [Suspect]
     Active Substance: SELEXIPAG
     Dosage: 1200 MCG, BID
     Route: 048
     Dates: start: 20160406
  36. REVATIO [Concomitant]
     Active Substance: SILDENAFIL CITRATE
     Dosage: 20 MG, TID
     Dates: start: 2007
  37. PROLIA [Concomitant]
     Active Substance: DENOSUMAB
     Dosage: UNK
     Dates: start: 20151105
  38. OXYGEN. [Concomitant]
     Active Substance: OXYGEN
     Dosage: UNK
     Dates: start: 20140425
  39. ACTIGALL [Concomitant]
     Active Substance: URSODIOL
     Dosage: UNK
     Dates: start: 20140425
  40. NIFEDICAL XL [Concomitant]
     Active Substance: NIFEDIPINE
     Dosage: UNK
     Dates: start: 20140425
  41. UPTRAVI [Suspect]
     Active Substance: SELEXIPAG
     Dosage: 1000 MCG, BID
     Route: 048
  42. IMODIUM A-D [Concomitant]
     Active Substance: LOPERAMIDE HYDROCHLORIDE
     Dosage: UNK
     Dates: start: 20160310
  43. ALDACTONE [Concomitant]
     Active Substance: SPIRONOLACTONE
     Dosage: UNK
     Dates: start: 20170907
  44. HUMALOG [Concomitant]
     Active Substance: INSULIN LISPRO
     Dosage: UNK
     Dates: start: 20171129
  45. CALCIUM CARBONATE. [Concomitant]
     Active Substance: CALCIUM CARBONATE
     Dosage: UNK
     Dates: start: 20171129
  46. BUMEX [Concomitant]
     Active Substance: BUMETANIDE
     Dosage: UNK
  47. BUMEX [Concomitant]
     Active Substance: BUMETANIDE
     Dosage: 3MG,QAM / 2MG, QPM
     Dates: start: 201712
  48. CLOBETASOL [Concomitant]
     Active Substance: CLOBETASOL
     Dosage: UNK
     Dates: start: 20180222
  49. MUPIROCIN. [Concomitant]
     Active Substance: MUPIROCIN
     Dosage: UNK
     Dates: start: 20180222

REACTIONS (62)
  - Fall [Unknown]
  - N-terminal prohormone brain natriuretic peptide increased [Not Recovered/Not Resolved]
  - Platelet count decreased [Unknown]
  - Interstitial lung disease [Unknown]
  - Malaise [Unknown]
  - Renal impairment [Recovered/Resolved]
  - Weight increased [Recovered/Resolved]
  - Dyspnoea [Recovering/Resolving]
  - Hypoxia [Unknown]
  - Disorientation [Unknown]
  - Parainfluenzae virus infection [Unknown]
  - Blood potassium decreased [Unknown]
  - Pneumonia [Unknown]
  - Blood creatinine increased [Recovered/Resolved]
  - Headache [Unknown]
  - Blood urea increased [Not Recovered/Not Resolved]
  - Nausea [Unknown]
  - Computerised tomogram abnormal [Recovering/Resolving]
  - Pulmonary hypertension [Fatal]
  - Renal disorder [Unknown]
  - Fluid overload [Recovered/Resolved]
  - Vertigo [Unknown]
  - Arthralgia [Unknown]
  - Peripheral swelling [Recovering/Resolving]
  - Pulmonary embolism [Unknown]
  - Urine output decreased [Not Recovered/Not Resolved]
  - Fluid retention [Unknown]
  - Urinary tract infection [Unknown]
  - Loss of consciousness [Unknown]
  - Pleural effusion [Unknown]
  - Pain in extremity [Fatal]
  - White blood cell count decreased [Recovering/Resolving]
  - Diabetes mellitus [Unknown]
  - Delirium [Unknown]
  - Iron deficiency anaemia [Unknown]
  - Swelling [Not Recovered/Not Resolved]
  - Laceration [Unknown]
  - Oxygen saturation decreased [Unknown]
  - Lung disorder [Unknown]
  - Cough [Unknown]
  - Disease progression [Unknown]
  - Hypercalcaemia [Unknown]
  - Ventricular arrhythmia [Unknown]
  - Electrocardiogram QT prolonged [Unknown]
  - Blood sodium decreased [Unknown]
  - Acute kidney injury [Not Recovered/Not Resolved]
  - Dyspnoea exertional [Fatal]
  - Vomiting [Unknown]
  - Asthenia [Unknown]
  - Rales [Unknown]
  - Chest X-ray abnormal [Unknown]
  - Acute respiratory failure [Fatal]
  - Abdominal distension [Not Recovered/Not Resolved]
  - Condition aggravated [Not Recovered/Not Resolved]
  - Oedema peripheral [Fatal]
  - Confusional state [Not Recovered/Not Resolved]
  - Syncope [Unknown]
  - Diarrhoea [Unknown]
  - Sputum discoloured [Unknown]
  - Dysphagia [Unknown]
  - Dizziness [Unknown]
  - Sick relative [Unknown]

NARRATIVE: CASE EVENT DATE: 201709
